FAERS Safety Report 9632427 (Version 1)
Quarter: 2013Q4

REPORT INFORMATION
  Report Type: Spontaneous
  Country: US (occurrence: US)
  Receive Date: 20131018
  Receipt Date: 20131018
  Transmission Date: 20140711
  Serious: No
  Sender: FDA-Public Use
  Company Number: US-PFIZER INC-2013297671

PATIENT
  Age: 74 Year
  Sex: Female
  Weight: 60.77 kg

DRUGS (4)
  1. CELEBREX [Suspect]
     Indication: OSTEOPOROSIS
     Dosage: 200 MG, 1X/DAY
     Dates: start: 2010, end: 2013
  2. CELEBREX [Suspect]
     Indication: BONE DEFORMITY
  3. JANUVIA [Concomitant]
     Indication: DIABETES MELLITUS
     Dosage: 500 MG, DAILY
  4. CRESTOR [Concomitant]
     Indication: BLOOD CHOLESTEROL ABNORMAL
     Dosage: 10 MG, DAILY

REACTIONS (2)
  - Malaise [Unknown]
  - Pain in extremity [Unknown]
